FAERS Safety Report 8370063-X (Version None)
Quarter: 2012Q2

REPORT INFORMATION
  Report Type: 
  Country: None (occurrence: None)
  Receive Date: 20120518
  Receipt Date: 20120515
  Transmission Date: 20120825
  Serious: Yes (Death)
  Sender: FDA-Public Use
  Company Number: PHHY2012JP041970

PATIENT
  Sex: Female
  Weight: 47 kg

DRUGS (36)
  1. ADONA [Concomitant]
     Indication: HAEMOSTASIS
     Dosage: 20 ML, UNK
     Dates: start: 20090818, end: 20090819
  2. LEVOFLOXACIN [Concomitant]
     Indication: PROPHYLAXIS
     Dosage: 500 MG, UNK
     Route: 048
     Dates: start: 20100106, end: 20100110
  3. BLOOD CELLS, PACKED HUMAN [Concomitant]
     Dosage: 2 UNITS
     Dates: start: 20090107, end: 20090131
  4. NEORAL [Suspect]
     Dosage: 150 MG, UNK
     Route: 048
     Dates: start: 20090513, end: 20090609
  5. DESFERAL [Concomitant]
     Indication: IRON OVERLOAD
     Dosage: 500 MG, UNK
     Route: 030
     Dates: start: 20050701, end: 20080702
  6. LIPITOR [Concomitant]
     Dosage: 5 MG, UNK
     Route: 048
     Dates: start: 20080124, end: 20100503
  7. MUCOSTA [Concomitant]
     Indication: PROPHYLAXIS AGAINST GASTROINTESTINAL ULCER
     Dosage: 300 MG, UNK
     Route: 048
     Dates: start: 20091105, end: 20091118
  8. NEUTROGIN [Concomitant]
     Indication: NEUTROPENIA
     Dosage: 100 UG, UNK
     Dates: start: 20100106, end: 20100503
  9. BLOOD CELLS, PACKED HUMAN [Concomitant]
     Dosage: 2 UNITS
     Dates: start: 20090218, end: 20090228
  10. BLOOD CELLS, PACKED HUMAN [Concomitant]
     Dosage: 2 UNITS
     Dates: start: 20090401, end: 20090430
  11. BLOOD CELLS, PACKED HUMAN [Concomitant]
     Dosage: 2 UNITS
     Dates: start: 20090513, end: 20090531
  12. BLOOD CELLS, PACKED HUMAN [Concomitant]
     Dosage: 2 UNITS
     Dates: start: 20080903, end: 20080930
  13. BLOOD CELLS, PACKED HUMAN [Concomitant]
     Dosage: 2 UNITS
     Dates: start: 20081217, end: 20081231
  14. BLOOD CELLS, PACKED HUMAN [Concomitant]
     Dosage: 2 UNITS
     Dates: start: 20090610, end: 20090630
  15. TRANSAMINE CAP [Concomitant]
     Indication: HAEMOSTASIS
     Dosage: 20 ML, UNK
     Dates: start: 20090818, end: 20090819
  16. GLAKAY [Concomitant]
     Indication: APLASTIC ANAEMIA
     Dosage: 45 MG, UNK
     Route: 048
     Dates: start: 20090902, end: 20100503
  17. MAXIPIME [Concomitant]
     Indication: PYREXIA
     Dosage: 4 G, UNK
     Dates: start: 20100427, end: 20100503
  18. BLOOD CELLS, PACKED HUMAN [Concomitant]
     Dosage: 2 UNITS
     Dates: start: 20090311, end: 20090331
  19. AMLODIPINE BESYLATE [Concomitant]
     Dosage: 2.5 MG, UNK
     Route: 048
     Dates: start: 20080903, end: 20100520
  20. AMPICILLIN [Concomitant]
     Indication: SUTURE REMOVAL
     Dosage: UNK
     Dates: start: 20090818, end: 20090820
  21. EXJADE [Suspect]
     Indication: IRON OVERLOAD
     Dosage: 1000 MG, UNK
     Route: 048
     Dates: start: 20080807, end: 20080820
  22. EXJADE [Suspect]
     Dosage: 1000 MG, UNK
     Route: 048
     Dates: start: 20081002, end: 20100503
  23. NORVASC [Concomitant]
     Dosage: 2.5 MG, UNK
     Route: 048
     Dates: start: 20051202, end: 20080826
  24. LASOPRAZOLE [Concomitant]
     Indication: PROPHYLAXIS AGAINST GASTROINTESTINAL ULCER
     Dosage: 30 MG, UNK
     Route: 048
     Dates: start: 20091105, end: 20100520
  25. BLOOD CELLS, PACKED HUMAN [Concomitant]
     Dosage: 2 UNITS
     Dates: start: 20090805
  26. NEORAL [Suspect]
     Dosage: 75 MG, UNK
     Route: 048
     Dates: start: 20081106, end: 20081217
  27. NEORAL [Suspect]
     Dosage: 125 MG, UNK
     Route: 048
     Dates: start: 20090610, end: 20090826
  28. SULBACTAM SODIUM [Concomitant]
     Indication: SUTURE REMOVAL
     Dosage: UNK
     Dates: start: 20090818, end: 20090820
  29. ONEALFA [Concomitant]
     Indication: APLASTIC ANAEMIA
     Dosage: 0.5 UG, UNK
     Route: 048
     Dates: start: 20090916, end: 20100503
  30. TRANEXAMIC ACID [Concomitant]
     Indication: EPISTAXIS
     Dosage: 750 MG, UNK
     Route: 048
     Dates: start: 20100224, end: 20100226
  31. BLOOD CELLS, PACKED HUMAN [Concomitant]
     Dosage: 2 UNITS
     Dates: start: 20081015, end: 20081031
  32. BLOOD CELLS, PACKED HUMAN [Concomitant]
     Dosage: 2 UNITS
     Dates: start: 20090708, end: 20090731
  33. EXJADE [Suspect]
     Indication: APLASTIC ANAEMIA
     Dosage: 500 MG, UNK
     Route: 048
     Dates: start: 20080821, end: 20081001
  34. NEORAL [Suspect]
     Indication: APLASTIC ANAEMIA
     Dosage: 100 MG, UNK
     Route: 048
     Dates: start: 20030601, end: 20081105
  35. NEORAL [Suspect]
     Dosage: 100 MG, UNK
     Route: 048
     Dates: start: 20081218, end: 20090512
  36. BLOOD CELLS, PACKED HUMAN [Concomitant]
     Dosage: 2 UNITS
     Dates: start: 20081119, end: 20081130

REACTIONS (4)
  - CEREBRAL HAEMORRHAGE [None]
  - RENAL IMPAIRMENT [None]
  - DISEASE PROGRESSION [None]
  - NAUSEA [None]
